FAERS Safety Report 22746406 (Version 3)
Quarter: 2023Q4

REPORT INFORMATION
  Report Type: Spontaneous
  Country: US (occurrence: US)
  Receive Date: 20230725
  Receipt Date: 20231208
  Transmission Date: 20240109
  Serious: No
  Sender: FDA-Public Use
  Company Number: US-SA-SAC20230721000602

PATIENT
  Age: 38 Year
  Sex: Male

DRUGS (3)
  1. DUPIXENT [Suspect]
     Active Substance: DUPILUMAB
     Indication: Dermatitis atopic
     Dosage: 600 MG, 1X
     Route: 058
     Dates: start: 20230630, end: 20230630
  2. DUPIXENT [Suspect]
     Active Substance: DUPILUMAB
     Dosage: 600MG
     Route: 058
     Dates: start: 202307
  3. DUPIXENT [Suspect]
     Active Substance: DUPILUMAB
     Dosage: 300 MG, QOW
     Route: 058

REACTIONS (6)
  - Diarrhoea [Recovered/Resolved]
  - Dry skin [Not Recovered/Not Resolved]
  - Pruritus [Not Recovered/Not Resolved]
  - Therapeutic response decreased [Unknown]
  - Extra dose administered [Unknown]
  - Product preparation error [Unknown]

NARRATIVE: CASE EVENT DATE: 20230101
